FAERS Safety Report 17551447 (Version 1)
Quarter: 2020Q1

REPORT INFORMATION
  Report Type: Spontaneous
  Country: JP (occurrence: JP)
  Receive Date: 20200317
  Receipt Date: 20200317
  Transmission Date: 20200409
  Serious: Yes (Life-Threatening)
  Sender: FDA-Public Use
  Company Number: NVSJ2020JP003426

PATIENT

DRUGS (2)
  1. TEGRETOL [Suspect]
     Active Substance: CARBAMAZEPINE
     Indication: EPILEPSY
     Route: 048
  2. STIRIPENTOL [Concomitant]
     Active Substance: STIRIPENTOL
     Indication: SEIZURE
     Route: 048

REACTIONS (1)
  - Condition aggravated [Recovering/Resolving]
